FAERS Safety Report 26115887 (Version 1)
Quarter: 2025Q4

REPORT INFORMATION
  Report Type: Spontaneous
  Country: US (occurrence: US)
  Receive Date: 20251203
  Receipt Date: 20251203
  Transmission Date: 20260117
  Serious: No
  Sender: AVERITAS
  Company Number: US-GRUNENTHAL-2025-125186

PATIENT
  Age: 72 Year
  Sex: Female

DRUGS (8)
  1. CAPSAICIN [Suspect]
     Active Substance: CAPSAICIN
     Indication: Analgesic therapy
     Dosage: UNK UNK, ONCE
     Route: 061
     Dates: start: 202311, end: 202311
  2. CAPSAICIN [Suspect]
     Active Substance: CAPSAICIN
     Dosage: 2 DOSAGE FORM, ONCE
     Route: 061
  3. CAPSAICIN [Suspect]
     Active Substance: CAPSAICIN
     Dosage: UNK, ONCE
     Route: 061
     Dates: start: 202402, end: 202402
  4. CAPSAICIN [Suspect]
     Active Substance: CAPSAICIN
     Dosage: UNK, ONCE
     Route: 061
     Dates: start: 202407, end: 202407
  5. LIDOCAINE [Suspect]
     Active Substance: LIDOCAINE
     Indication: Pain in extremity
     Dosage: UNK UNK, 1/DAY
     Route: 061
  6. GABAPENTIN [Concomitant]
     Active Substance: GABAPENTIN
     Indication: Pain in extremity
     Dosage: 300 MILLIGRAM, 3/DAY
     Route: 065
  7. OXYCODONE [Concomitant]
     Active Substance: OXYCODONE
     Indication: Pain in extremity
     Dosage: 5 MILLIGRAM, AS NEEDED
     Route: 065
  8. CAPSAICIN [Concomitant]
     Active Substance: CAPSAICIN
     Indication: Pain in extremity
     Dosage: UNK, 4/DAY
     Route: 065

REACTIONS (4)
  - Off label use [Unknown]
  - Therapeutic product effect incomplete [Unknown]
  - Application site pain [Unknown]
  - Therapeutic response unexpected [Unknown]
